FAERS Safety Report 21310684 (Version 7)
Quarter: 2022Q4

REPORT INFORMATION
  Report Type: Report from Study
  Country: AU (occurrence: None)
  Receive Date: 20220909
  Receipt Date: 20221202
  Transmission Date: 20230112
  Serious: Yes (Hospitalization)
  Sender: FDA-Public Use
  Company Number: AU-ROCHE-3172194

PATIENT
  Age: 77 Year
  Sex: Male

DRUGS (19)
  1. RANIBIZUMAB [Suspect]
     Active Substance: RANIBIZUMAB
     Indication: Neovascular age-related macular degeneration
     Dosage: DOSE LAST STUDY DRUG ADMIN PRIOR AE/SAE WAS 100 MG/ML?ON 05/JUL/2022, START DATE OF MOST RECENT DOSE
     Route: 050
  2. RANIBIZUMAB [Suspect]
     Active Substance: RANIBIZUMAB
  3. RANIBIZUMAB [Suspect]
     Active Substance: RANIBIZUMAB
  4. RANIBIZUMAB [Suspect]
     Active Substance: RANIBIZUMAB
  5. RANIBIZUMAB [Suspect]
     Active Substance: RANIBIZUMAB
  6. RANIBIZUMAB [Suspect]
     Active Substance: RANIBIZUMAB
  7. RAMIPRIL [Concomitant]
     Active Substance: RAMIPRIL
     Indication: Hypertension
     Route: 048
     Dates: start: 2012
  8. APOTEX-PANTOPRAZOLE [Concomitant]
     Indication: Ulcer
     Dates: start: 2010
  9. CLOPIDOGREL WINTHROP PLUS ASPIRIN [Concomitant]
     Indication: Hypertension
     Dates: start: 2012
  10. CLOPIDOGREL WINTHROP PLUS ASPIRIN [Concomitant]
     Dates: start: 20220707
  11. BREO ELLIPTA [Concomitant]
     Active Substance: FLUTICASONE FUROATE\VILANTEROL TRIFENATATE
     Indication: Asthma
     Dates: start: 2018
  12. EZETIMIBE\ROSUVASTATIN [Concomitant]
     Active Substance: EZETIMIBE\ROSUVASTATIN
     Indication: Blood cholesterol
     Dates: start: 2012
  13. BISOPROLOL FUMARATE [Concomitant]
     Active Substance: BISOPROLOL FUMARATE
     Indication: Hypertension
     Dates: start: 2012
  14. ASCORBIC ACID\CUPRIC OXIDE\TOCOPHERSOLAN\ZINC OXIDE [Concomitant]
     Active Substance: ASCORBIC ACID\CUPRIC OXIDE\TOCOPHERSOLAN\ZINC OXIDE
     Indication: Macular degeneration
     Dates: start: 2015
  15. VENTOLIN [Concomitant]
     Active Substance: ALBUTEROL SULFATE
     Indication: Asthma
     Dates: start: 1980
  16. MOXONIDINE [Concomitant]
     Active Substance: MOXONIDINE
     Indication: Hypertension
     Dates: start: 20220623
  17. LUCENTIS [Concomitant]
     Active Substance: RANIBIZUMAB
     Indication: Neovascular age-related macular degeneration
  18. MAXIDEX [Concomitant]
     Active Substance: DEXAMETHASONE
     Dates: start: 20220705, end: 20220802
  19. CHLORAMPHENICOL [Concomitant]
     Active Substance: CHLORAMPHENICOL
     Dates: start: 20220704, end: 20220802

REACTIONS (1)
  - Pyrexia [Recovered/Resolved]

NARRATIVE: CASE EVENT DATE: 20220821
